FAERS Safety Report 11751910 (Version 1)
Quarter: 2015Q4

REPORT INFORMATION
  Report Type: Report from Study
  Country: IN (occurrence: IN)
  Receive Date: 20151118
  Receipt Date: 20151118
  Transmission Date: 20160304
  Serious: Yes (Death)
  Sender: FDA-Public Use
  Company Number: IN-MYLANLABS-2015M1040182

PATIENT

DRUGS (1)
  1. MAGNESIUM [Suspect]
     Active Substance: MAGNESIUM
     Indication: ECLAMPSIA
     Route: 064

REACTIONS (2)
  - Foetal exposure during pregnancy [Fatal]
  - Neonatal asphyxia [Fatal]
